FAERS Safety Report 19565843 (Version 1)
Quarter: 2021Q3

REPORT INFORMATION
  Report Type: Report from Study
  Country: US (occurrence: US)
  Receive Date: 20210716
  Receipt Date: 20210716
  Transmission Date: 20211014
  Serious: Yes (Other)
  Sender: FDA-Public Use
  Company Number: US-GLAXOSMITHKLINE-US2021AMR081720

PATIENT
  Age: 68 Year
  Sex: Female

DRUGS (1)
  1. BELANTAMAB MAFODOTIN. [Suspect]
     Active Substance: BELANTAMAB MAFODOTIN
     Indication: PRODUCT USED FOR UNKNOWN INDICATION
     Dosage: UNK
     Dates: start: 20210212, end: 202104

REACTIONS (3)
  - Visual acuity reduced [Unknown]
  - Plasma cell myeloma [Unknown]
  - Keratopathy [Unknown]

NARRATIVE: CASE EVENT DATE: 20210409
